FAERS Safety Report 9887444 (Version 1)
Quarter: 2014Q1

REPORT INFORMATION
  Report Type: Spontaneous
  Country: US (occurrence: None)
  Receive Date: 20140207
  Receipt Date: 20140207
  Transmission Date: 20141002
  Serious: Yes (Hospitalization)
  Sender: FDA-Public Use
  Company Number: None

PATIENT
  Age: 63 Year
  Sex: Male
  Weight: 131.3 kg

DRUGS (2)
  1. LIRAGLUTIDE [Suspect]
     Indication: DIABETES MELLITUS
     Route: 058
     Dates: start: 20100922, end: 20110605
  2. SITAGLIPTIN [Suspect]
     Indication: DIABETES MELLITUS
     Route: 048
     Dates: start: 20101117, end: 20110605

REACTIONS (3)
  - Pancreatitis [None]
  - Blood creatinine increased [None]
  - Blood urea increased [None]
